FAERS Safety Report 21979336 (Version 1)
Quarter: 2023Q1

REPORT INFORMATION
  Report Type: Spontaneous
  Country: US (occurrence: US)
  Receive Date: 20230210
  Receipt Date: 20230210
  Transmission Date: 20230418
  Serious: No
  Sender: FDA-Public Use
  Company Number: US-PERRIGO-22US014772

PATIENT
  Age: 49 Year
  Sex: Female

DRUGS (1)
  1. LOPERAMIDE HYDROCHLORIDE [Suspect]
     Active Substance: LOPERAMIDE HYDROCHLORIDE
     Indication: Antidiarrhoeal supportive care
     Dosage: 4 MG, SINGLE
     Route: 048
     Dates: start: 20221102, end: 20221102

REACTIONS (2)
  - Abdominal pain upper [Unknown]
  - Dysstasia [Unknown]

NARRATIVE: CASE EVENT DATE: 20221102
